FAERS Safety Report 7332395-3 (Version None)
Quarter: 2011Q1

REPORT INFORMATION
  Report Type: 
  Country: None (occurrence: None)
  Receive Date: 20110304
  Receipt Date: 20110223
  Transmission Date: 20110831
  Serious: Yes (Other)
  Sender: FDA-Public Use
  Company Number: B0703514A

PATIENT
  Age: 37 Year
  Sex: Female

DRUGS (4)
  1. EFAVIRENZ [Suspect]
     Indication: HIV INFECTION
     Route: 065
  2. STAVUDINE [Suspect]
     Indication: HIV INFECTION
     Route: 065
  3. LAMIVUDINE-HIV [Suspect]
     Indication: HIV INFECTION
     Route: 065
  4. ANTI-TUBERCULOSIS MEDICATION [Concomitant]

REACTIONS (12)
  - IMMUNE RECONSTITUTION SYNDROME [None]
  - SKIN LESION [None]
  - PAIN [None]
  - SKIN PLAQUE [None]
  - ANAEMIA [None]
  - LEPROSY [None]
  - NERVE INJURY [None]
  - JAUNDICE [None]
  - LYMPHADENOPATHY [None]
  - MYCOBACTERIAL INFECTION [None]
  - SKIN OEDEMA [None]
  - LACRIMATION INCREASED [None]
